FAERS Safety Report 8489226-8 (Version None)
Quarter: 2012Q3

REPORT INFORMATION
  Report Type: 
  Country: None (occurrence: None)
  Receive Date: 20120705
  Receipt Date: 20120625
  Transmission Date: 20120928
  Serious: Yes (Hospitalization)
  Sender: FDA-Public Use
  Company Number: US-ASTRAZENECA-2012SE40929

PATIENT
  Age: 238 Day
  Sex: Male

DRUGS (10)
  1. SYNAGIS [Suspect]
     Route: 030
     Dates: start: 20111125, end: 20111125
  2. SYNAGIS [Suspect]
     Route: 030
     Dates: start: 20120127, end: 20120127
  3. SYNAGIS [Suspect]
     Route: 030
     Dates: start: 20120412, end: 20120412
  4. SYNAGIS [Suspect]
     Route: 030
     Dates: start: 20120412, end: 20120412
  5. SYNAGIS [Suspect]
     Indication: PREMATURE BABY
     Route: 030
     Dates: start: 20111001, end: 20111001
  6. SYNAGIS [Suspect]
     Route: 030
     Dates: start: 20120127, end: 20120127
  7. PULMICORT [Concomitant]
     Dosage: AT BEDTIME
     Route: 055
  8. SYNAGIS [Suspect]
     Route: 030
     Dates: start: 20111125, end: 20111125
  9. CETIRIZINE [Concomitant]
  10. SYNAGIS [Suspect]
     Indication: HEART DISEASE CONGENITAL
     Route: 030
     Dates: start: 20111001, end: 20111001

REACTIONS (3)
  - BRONCHIOLITIS [None]
  - WHEEZING [None]
  - RESPIRATORY SYNCYTIAL VIRUS INFECTION [None]
